FAERS Safety Report 12268643 (Version 1)
Quarter: 2016Q2

REPORT INFORMATION
  Report Type: Spontaneous
  Country: US (occurrence: US)
  Receive Date: 20160414
  Receipt Date: 20160414
  Transmission Date: 20160815
  Serious: No
  Sender: FDA-Public Use
  Company Number: US-ASTRAZENECA-2005BM05808

PATIENT
  Age: 633 Month
  Sex: Male
  Weight: 99.8 kg

DRUGS (3)
  1. EXENATIDE [Suspect]
     Active Substance: EXENATIDE
     Indication: TYPE 2 DIABETES MELLITUS
     Route: 058
     Dates: start: 20051121
  2. BYDUREON [Suspect]
     Active Substance: EXENATIDE
     Dosage: 2 MG WEEKLY
     Route: 065
     Dates: start: 201601
  3. GLIPIZIDE. [Suspect]
     Active Substance: GLIPIZIDE
     Indication: TYPE 2 DIABETES MELLITUS
     Dosage: 5 MG, QD
     Route: 048
     Dates: start: 200512

REACTIONS (3)
  - Product quality issue [Unknown]
  - Blood glucose decreased [Unknown]
  - Intentional device misuse [Unknown]

NARRATIVE: CASE EVENT DATE: 200511
